FAERS Safety Report 15791098 (Version 1)
Quarter: 2019Q1

REPORT INFORMATION
  Report Type: Spontaneous
  Country: US (occurrence: US)
  Receive Date: 20190104
  Receipt Date: 20190104
  Transmission Date: 20190417
  Serious: Yes (Hospitalization, Disabling, Other)
  Sender: FDA-Public Use
  Company Number: None

PATIENT
  Age: 36 Year
  Sex: Female
  Weight: 76.5 kg

DRUGS (5)
  1. OMNIPAQUE [Suspect]
     Active Substance: IOHEXOL
     Indication: SCAN WITH CONTRAST
     Route: 042
     Dates: start: 20180430, end: 20180430
  2. LEVOTHYROXINE. [Concomitant]
     Active Substance: LEVOTHYROXINE
  3. ATENOLOL. [Concomitant]
     Active Substance: ATENOLOL
  4. VITAMIN D2 [Concomitant]
     Active Substance: ERGOCALCIFEROL
  5. BUPROFEN/ACETAMINOPHEN [Concomitant]

REACTIONS (33)
  - Anaphylactoid reaction [None]
  - Dizziness [None]
  - Feeling hot [None]
  - Dyspnoea [None]
  - Wheezing [None]
  - Feeling abnormal [None]
  - Abdominal pain [None]
  - Apparent death [None]
  - Paraesthesia [None]
  - Type IV hypersensitivity reaction [None]
  - Skin odour abnormal [None]
  - Visual impairment [None]
  - Confusional state [None]
  - Genital burning sensation [None]
  - Tremor [None]
  - Pruritus generalised [None]
  - Photophobia [None]
  - Eye irritation [None]
  - Vision blurred [None]
  - Tinnitus [None]
  - Sinus disorder [None]
  - Limb discomfort [None]
  - Dysphonia [None]
  - Paralysis [None]
  - Gait inability [None]
  - Sensory disturbance [None]
  - Decreased activity [None]
  - Impaired driving ability [None]
  - Speech disorder [None]
  - Hypoaesthesia [None]
  - Asthenia [None]
  - Tunnel vision [None]
  - Mydriasis [None]

NARRATIVE: CASE EVENT DATE: 20180430
